FAERS Safety Report 7530926-1 (Version None)
Quarter: 2011Q2

REPORT INFORMATION
  Report Type: 
  Country: None (occurrence: None)
  Receive Date: 20110608
  Receipt Date: 20110526
  Transmission Date: 20111010
  Serious: Yes (Other)
  Sender: FDA-Public Use
  Company Number: GR-ELI_LILLY_AND_COMPANY-GR201106000779

PATIENT
  Age: 30 Year
  Sex: Female

DRUGS (3)
  1. CYMBALTA [Suspect]
     Dosage: 60 MG, BID
     Route: 048
     Dates: start: 20110517
  2. CYMBALTA [Suspect]
     Indication: DEPRESSION
     Dosage: 90 MG, QD
     Route: 048
     Dates: start: 20110420, end: 20110516
  3. CENTRAC [Concomitant]
     Indication: ANXIOLYTIC THERAPY
     Dosage: 10 MG, PRN
     Route: 048
     Dates: start: 20110201

REACTIONS (1)
  - TEMPOROMANDIBULAR JOINT SYNDROME [None]
